FAERS Safety Report 12358521 (Version 1)
Quarter: 2016Q2

REPORT INFORMATION
  Report Type: Spontaneous
  Country: DK (occurrence: DK)
  Receive Date: 20160512
  Receipt Date: 20160512
  Transmission Date: 20160815
  Serious: Yes (Other)
  Sender: FDA-Public Use
  Company Number: DK-BAXTER-2016BAX023253

PATIENT
  Age: 25 Year
  Sex: Male

DRUGS (14)
  1. CLINOLEIC [Suspect]
     Active Substance: OLIVE OIL\SOYBEAN OIL
     Indication: NUTRITIONAL SUPPLEMENTATION
     Route: 042
  2. VITAL [Concomitant]
     Indication: NUTRITIONAL SUPPLEMENTATION
     Dosage: BUILT UP TO 1800 ML
     Route: 042
  3. NITROGEN. [Concomitant]
     Active Substance: NITROGEN
     Route: 042
  4. AMPHOTERICIN B. [Concomitant]
     Active Substance: AMPHOTERICIN B
     Indication: DEVICE RELATED INFECTION
     Route: 065
  5. SMOFLIPID [Concomitant]
     Active Substance: FISH OIL\MEDIUM-CHAIN TRIGLYCERIDES\OLIVE OIL\SOYBEAN OIL
     Indication: NUTRITIONAL SUPPLEMENTATION
     Route: 042
  6. VITAL [Concomitant]
     Route: 042
  7. NITROGEN. [Concomitant]
     Active Substance: NITROGEN
     Indication: PRODUCT USED FOR UNKNOWN INDICATION
     Route: 042
  8. AMPHOTERICIN B. [Concomitant]
     Active Substance: AMPHOTERICIN B
     Indication: FUNGAL INFECTION
  9. GLUCOS ^BAXTER^ VIAFLO [Suspect]
     Active Substance: DEXTROSE
     Indication: NUTRITIONAL SUPPLEMENTATION
     Route: 042
  10. GLUCOS ^BAXTER^ VIAFLO [Suspect]
     Active Substance: DEXTROSE
     Route: 042
  11. METHOTREXATE [Suspect]
     Active Substance: METHOTREXATE
     Indication: PRODUCT USED FOR UNKNOWN INDICATION
     Route: 065
  12. SALINE [Concomitant]
     Active Substance: SODIUM CHLORIDE
     Indication: CATHETER MANAGEMENT
     Route: 065
  13. AZATHIOPRINE. [Concomitant]
     Active Substance: AZATHIOPRINE
     Indication: IMMUNOSUPPRESSION
     Route: 065
  14. INTRALIPID [Suspect]
     Active Substance: EGG PHOSPHOLIPIDS\GLYCERIN\SOYBEAN OIL
     Indication: NUTRITIONAL SUPPLEMENTATION
     Route: 042

REACTIONS (7)
  - Liver disorder [Recovered/Resolved]
  - Hepatic steatosis [None]
  - Functional gastrointestinal disorder [Recovered/Resolved]
  - Cholestasis [None]
  - Hepatitis [None]
  - Device related infection [None]
  - Fungal sepsis [None]
